FAERS Safety Report 8175035-6 (Version None)
Quarter: 2012Q1

REPORT INFORMATION
  Report Type: 
  Country: None (occurrence: None)
  Receive Date: 20120229
  Receipt Date: 20120221
  Transmission Date: 20120608
  Serious: Yes (Hospitalization, Congenital Anomaly)
  Sender: FDA-Public Use
  Company Number: GXKR2012DE000898

PATIENT

DRUGS (6)
  1. TRIMIPRAMINE MALEATE [Suspect]
     Dosage: MATERNAL DOSE: 400 MG, DAILY
     Route: 064
     Dates: end: 20100901
  2. LORAZEPAM [Suspect]
     Dosage: MATERNAL DOSE: 8 MG, DAILY
     Route: 064
     Dates: end: 20100601
  3. FOLIC ACID [Concomitant]
     Route: 064
  4. LAMOTRIGINE [Suspect]
     Dosage: MATERNAL DOSE: 200 MG, DAILY
     Route: 064
  5. RISPERDAL [Suspect]
     Dosage: MATERNAL DOSE: 6 MG, DAILY
     Route: 064
     Dates: end: 20100701
  6. VENLAFAXINE HYDROCHLORIDE [Suspect]
     Dosage: MATERNAL DOSE: 150 MG, DAILY
     Route: 064
     Dates: end: 20100701

REACTIONS (6)
  - PARACHUTE MITRAL VALVE [None]
  - COARCTATION OF THE AORTA [None]
  - ATRIAL SEPTAL DEFECT [None]
  - PATENT DUCTUS ARTERIOSUS [None]
  - VENTRICULAR SEPTAL DEFECT [None]
  - FOETAL EXPOSURE DURING PREGNANCY [None]
